FAERS Safety Report 7936723-7 (Version None)
Quarter: 2011Q4

REPORT INFORMATION
  Report Type: 
  Country: None (occurrence: None)
  Receive Date: 20111123
  Receipt Date: 20111122
  Transmission Date: 20120403
  Serious: Yes (Other)
  Sender: FDA-Public Use
  Company Number: BE-ABBOTT-11P-013-0876120-00

PATIENT
  Sex: Male

DRUGS (2)
  1. HUMIRA [Suspect]
     Indication: PSORIATIC ARTHROPATHY
     Dates: start: 20110408, end: 20110720
  2. FELDENE [Concomitant]
     Indication: PSORIATIC ARTHROPATHY
     Dosage: 1/DAY OCCASIONALLY
     Dates: start: 20050101

REACTIONS (1)
  - RASH PRURITIC [None]
